FAERS Safety Report 10008837 (Version 1)
Quarter: 2014Q1

REPORT INFORMATION
  Report Type: Spontaneous
  Country: US (occurrence: US)
  Receive Date: 20140313
  Receipt Date: 20140313
  Transmission Date: 20141002
  Serious: No
  Sender: FDA-Public Use
  Company Number: US-INCYTE CORPORATION-2012IN000939

PATIENT
  Sex: Female

DRUGS (1)
  1. JAKAFI [Suspect]
     Indication: MYELOFIBROSIS
     Dosage: NOT SPECIFIED
     Route: 048

REACTIONS (4)
  - Asthenia [Unknown]
  - Increased appetite [Unknown]
  - Haemoglobin decreased [Unknown]
  - Weight increased [Unknown]
